FAERS Safety Report 21999864 (Version 2)
Quarter: 2023Q1

REPORT INFORMATION
  Report Type: Spontaneous
  Country: US (occurrence: US)
  Receive Date: 20230216
  Receipt Date: 20230216
  Transmission Date: 20230417
  Serious: No
  Sender: FDA-Public Use
  Company Number: US-PFIZER INC-PV202300020855

PATIENT
  Age: 55 Year
  Sex: Female
  Weight: 79.819 kg

DRUGS (7)
  1. NURTEC ODT [Suspect]
     Active Substance: RIMEGEPANT SULFATE
     Indication: Migraine prophylaxis
     Dosage: 75 MG, ALTERNATE DAY
     Dates: start: 2022
  2. ESTRADIOL [Concomitant]
     Active Substance: ESTRADIOL
     Dosage: 2 MG, 1X/DAY
  3. PAROXETINE [Concomitant]
     Active Substance: PAROXETINE
     Dosage: 20 MG, 1X/DAY
  4. SINGULAIR [Concomitant]
     Active Substance: MONTELUKAST SODIUM
     Dosage: UNK
  5. VITAMIN B12 [Concomitant]
     Active Substance: CYANOCOBALAMIN
     Dosage: UNK
  6. VITAMIN D3 [Concomitant]
     Active Substance: CHOLECALCIFEROL
     Dosage: UNK
  7. MAGNESIUM [Concomitant]
     Active Substance: MAGNESIUM
     Dosage: UNK

REACTIONS (6)
  - Arthralgia [Not Recovered/Not Resolved]
  - Irritable bowel syndrome [Not Recovered/Not Resolved]
  - Pain [Not Recovered/Not Resolved]
  - Diarrhoea [Not Recovered/Not Resolved]
  - Gastric disorder [Not Recovered/Not Resolved]
  - Product dose omission in error [Unknown]
